FAERS Safety Report 9327648 (Version 2)
Quarter: 2013Q3

REPORT INFORMATION
  Report Type: Spontaneous
  Country: US (occurrence: US)
  Receive Date: 20130604
  Receipt Date: 20130708
  Transmission Date: 20140515
  Serious: No
  Sender: FDA-Public Use
  Company Number: US-AMGEN-USASP2013037605

PATIENT
  Age: 62 Year
  Sex: Male

DRUGS (1)
  1. ENBREL [Suspect]
     Indication: RHEUMATOID ARTHRITIS
     Dosage: 50 MG, QWK
     Dates: start: 20130510, end: 20130510

REACTIONS (3)
  - Tooth disorder [Not Recovered/Not Resolved]
  - Tooth pulp haemorrhage [Not Recovered/Not Resolved]
  - Toothache [Not Recovered/Not Resolved]
